FAERS Safety Report 18635385 (Version 1)
Quarter: 2020Q4

REPORT INFORMATION
  Report Type: Spontaneous
  Country: US (occurrence: US)
  Receive Date: 20201218
  Receipt Date: 20201218
  Transmission Date: 20210114
  Serious: No
  Sender: FDA-Public Use
  Company Number: US-THERAPEUTICSMD-2020TMD04268

PATIENT
  Sex: Female
  Weight: 62.59 kg

DRUGS (6)
  1. IMVEXXY [Suspect]
     Active Substance: ESTRADIOL
     Indication: ATROPHIC VULVOVAGINITIS
     Dosage: 10 ?G, 2X/WEEK AT BEDTIME
     Route: 067
     Dates: start: 2019, end: 202008
  2. UNSPECIFIED MEDICATION FOR DIABETES INSIPIDUS [Concomitant]
  3. UNSPECIFIED MEDICATIONS FOR RESPIRATORY ALLERGIES [Concomitant]
  4. UNSPECIFIED MEDICATIONS FOR MENTAL HEALTH [Concomitant]
  5. TAMOXIFEN [Concomitant]
     Active Substance: TAMOXIFEN
  6. UNSPECIFIED ANTI-DIURETIC [Concomitant]

REACTIONS (5)
  - Electrolyte imbalance [Not Recovered/Not Resolved]
  - Muscle spasms [Not Recovered/Not Resolved]
  - Contraindicated product administered [Recovered/Resolved]
  - Therapeutic product effect incomplete [Recovered/Resolved]
  - Off label use [Recovered/Resolved]

NARRATIVE: CASE EVENT DATE: 2019
